FAERS Safety Report 23949956 (Version 1)
Quarter: 2024Q2

REPORT INFORMATION
  Report Type: Spontaneous
  Country: US (occurrence: None)
  Receive Date: 20240606
  Receipt Date: 20240606
  Transmission Date: 20240717
  Serious: Yes (Hospitalization, Other)
  Sender: FDA-Public Use
  Company Number: None

PATIENT
  Age: 53 Year
  Sex: Female
  Weight: 83.25 kg

DRUGS (20)
  1. DULOXETINE HYDROCHLORIDE [Suspect]
     Active Substance: DULOXETINE HYDROCHLORIDE
     Indication: Neuralgia
     Dosage: OTHER QUANTITY : 2 CAPSULE(S);?FREQUENCY : AT BEDTIME;?
     Route: 048
     Dates: start: 20220601
  2. DULOXETINE HYDROCHLORIDE [Suspect]
     Active Substance: DULOXETINE HYDROCHLORIDE
     Indication: Depression
  3. GABAPENTIN [Suspect]
     Active Substance: GABAPENTIN
  4. PREGABALIN [Suspect]
     Active Substance: PREGABALIN
  5. LEVOTHYROXINE [Concomitant]
  6. LOSARTAN [Concomitant]
  7. LOPRESSOR [Concomitant]
     Active Substance: METOPROLOL TARTRATE
  8. METHOCARBAMOL [Concomitant]
  9. LAMOTRIGINE [Concomitant]
  10. MELOXICAM [Concomitant]
  11. ESTRADIOL [Concomitant]
  12. TESTOSTERONE [Concomitant]
  13. Hydromorphine [Concomitant]
  14. BUPRENORPHINE [Concomitant]
  15. Garden of Life probiotic [Concomitant]
  16. CALCIUM CITRATE [Concomitant]
     Active Substance: CALCIUM CITRATE
  17. VITAMIN D3 [Concomitant]
     Active Substance: CHOLECALCIFEROL
  18. VITAMIN C [Concomitant]
     Active Substance: ASCORBIC ACID
  19. Centrum Silver for Women [Concomitant]
  20. Berber [Concomitant]

REACTIONS (13)
  - Seizure [None]
  - Dizziness [None]
  - Balance disorder [None]
  - Visual impairment [None]
  - Fatigue [None]
  - Pruritus [None]
  - Serotonin syndrome [None]
  - Hypertension [None]
  - Arthralgia [None]
  - Pain [None]
  - Muscle rigidity [None]
  - Migraine [None]
  - Diplopia [None]

NARRATIVE: CASE EVENT DATE: 20220701
